FAERS Safety Report 14041063 (Version 1)
Quarter: 2017Q4

REPORT INFORMATION
  Report Type: Spontaneous
  Country: US (occurrence: US)
  Receive Date: 20171004
  Receipt Date: 20171004
  Transmission Date: 20180321
  Serious: Yes (Other)
  Sender: FDA-Public Use
  Company Number: US-SAOL THERAPEUTICS-2017SAO01520

PATIENT
  Sex: Male

DRUGS (7)
  1. TRILEPTAL [Concomitant]
     Active Substance: OXCARBAZEPINE
     Dosage: 600 MG, 3X/DAY
  2. KEPPRA [Concomitant]
     Active Substance: LEVETIRACETAM
     Dosage: 2000 MG IN MORNING, 1500 MG AFTERNOON, 2000 MG EVENING, 1X/DAY
  3. VIMPAT [Concomitant]
     Active Substance: LACOSAMIDE
     Dosage: 29 ML, 2X/DAY
     Route: 048
  4. BACLOFEN. [Suspect]
     Active Substance: BACLOFEN
     Indication: MUSCLE SPASTICITY
     Dosage: 264.8 ?G, \DAY
     Route: 037
  5. BACLOFEN. [Suspect]
     Active Substance: BACLOFEN
     Indication: CEREBRAL PALSY
  6. BANZEL [Concomitant]
     Active Substance: RUFINAMIDE
     Dosage: 800 MG IN MORNING AND 1200 MG EVENING, 1X/DAY
  7. ONFI [Suspect]
     Active Substance: CLOBAZAM
     Dosage: 10 MG, 2X/DAY

REACTIONS (5)
  - Sepsis [Unknown]
  - Muscle spasms [Unknown]
  - Drug interaction [Unknown]
  - Urinary retention [Unknown]
  - Urinary tract infection [Unknown]

NARRATIVE: CASE EVENT DATE: 201502
